FAERS Safety Report 15517425 (Version 1)
Quarter: 2018Q4

REPORT INFORMATION
  Report Type: Spontaneous
  Country: NO (occurrence: NO)
  Receive Date: 20181017
  Receipt Date: 20181017
  Transmission Date: 20190205
  Serious: Yes (Life-Threatening, Disabling)
  Sender: FDA-Public Use
  Company Number: NO-OTSUKA-2018_033723

PATIENT
  Age: 40 Year
  Sex: Male
  Weight: 73 kg

DRUGS (19)
  1. VIVAL [Suspect]
     Active Substance: DIAZEPAM
     Indication: ANXIETY
     Dosage: UNK
     Route: 048
     Dates: start: 20080101
  2. ZELDOX [Suspect]
     Active Substance: ZIPRASIDONE
     Indication: ANXIETY
     Dosage: UNK
     Route: 048
     Dates: start: 20080101
  3. IMOVANE [Suspect]
     Active Substance: ZOPICLONE
     Indication: ANXIETY
     Dosage: UNK
     Route: 048
     Dates: start: 20080101
  4. ATARAX [Suspect]
     Active Substance: HYDROXYZINE HYDROCHLORIDE
     Indication: ANXIETY
     Dosage: UNK
     Route: 048
     Dates: start: 20080101
  5. ZOLOFT [Suspect]
     Active Substance: SERTRALINE HYDROCHLORIDE
     Indication: ANXIETY
     Dosage: UNK
     Route: 048
     Dates: start: 20080101
  6. ABILIFY [Suspect]
     Active Substance: ARIPIPRAZOLE
     Indication: ANXIETY
     Dosage: UNK
     Route: 048
     Dates: start: 20080101
  7. HEMINEVRIN [Suspect]
     Active Substance: CLOMETHIAZOLE
     Indication: ANXIETY
     Dosage: UNK
     Route: 048
     Dates: start: 20080101
  8. TRUXAL [Suspect]
     Active Substance: CHLORPROTHIXENE
     Indication: ANXIETY
     Dosage: UNK
     Route: 048
     Dates: start: 20080101
  9. SEROQUEL [Suspect]
     Active Substance: QUETIAPINE FUMARATE
     Indication: ANXIETY
     Dosage: UNK
     Route: 048
     Dates: start: 20080101
  10. RISPERDAL [Suspect]
     Active Substance: RISPERIDONE
     Indication: ANXIETY
     Dosage: UNK
     Route: 048
     Dates: start: 20080101
  11. WELLBUTRIN [Suspect]
     Active Substance: BUPROPION HYDROCHLORIDE
     Indication: ANXIETY
     Dosage: UNK
     Route: 065
     Dates: start: 20080101
  12. ZYPREXA [Suspect]
     Active Substance: OLANZAPINE
     Indication: ANXIETY
     Dosage: UNK
     Route: 048
     Dates: start: 20080101
  13. VALLERGAN [Suspect]
     Active Substance: TRIMEPRAZINE
     Indication: ANXIETY
     Dosage: UNK
     Route: 048
     Dates: start: 20080101
  14. QUETIAPINE. [Suspect]
     Active Substance: QUETIAPINE
     Indication: ANXIETY
     Dosage: UNK
     Route: 065
     Dates: start: 20080101
  15. OLANZAPINE. [Suspect]
     Active Substance: OLANZAPINE
     Indication: ANXIETY
     Dosage: UNK
     Route: 065
     Dates: start: 20080101
  16. BUSPIRONE [Suspect]
     Active Substance: BUSPIRONE HYDROCHLORIDE
     Indication: ANXIETY
     Dosage: UNK
     Route: 065
     Dates: start: 20080101
  17. TRILAFON [Suspect]
     Active Substance: PERPHENAZINE
     Indication: ANXIETY
     Dosage: UNK
     Route: 048
     Dates: start: 20080101
  18. SOBRIL [Suspect]
     Active Substance: OXAZEPAM
     Indication: ANXIETY
     Dosage: 50 MG, UNK (8 HOUR)
     Route: 048
     Dates: start: 20080101, end: 20180101
  19. XANOR [Suspect]
     Active Substance: ALPRAZOLAM
     Indication: ANXIETY
     Dosage: UNK
     Route: 048
     Dates: start: 20080101

REACTIONS (5)
  - Product use in unapproved indication [Unknown]
  - Balance disorder [Not Recovered/Not Resolved]
  - Vision blurred [Not Recovered/Not Resolved]
  - Muscle spasms [Not Recovered/Not Resolved]
  - Headache [Not Recovered/Not Resolved]

NARRATIVE: CASE EVENT DATE: 20180101
